FAERS Safety Report 4459330-X (Version None)
Quarter: 2004Q3

REPORT INFORMATION
  Report Type: 
  Country: None (occurrence: None)
  Receive Date: 20040927
  Receipt Date: 20040916
  Transmission Date: 20050211
  Serious: Yes (Other)
  Sender: FDA-Public Use
  Company Number: US-MERCK-0409USA01423

PATIENT
  Age: 45 Year
  Sex: Female

DRUGS (22)
  1. VICODIN [Concomitant]
     Route: 065
  2. XANAX [Concomitant]
     Route: 065
  3. AMITRIPTYLINE HYDROCHLORIDE [Concomitant]
     Route: 065
  4. ANTIMICROBIAL (UNSPECIFIED) [Concomitant]
     Route: 065
  5. WELLBUTRIN [Concomitant]
     Route: 065
  6. SOMA [Concomitant]
     Route: 065
  7. CLONOPIN [Concomitant]
     Route: 065
  8. VALIUM [Concomitant]
     Route: 065
  9. MOTRIN [Concomitant]
     Route: 065
  10. IBUPROFEN [Concomitant]
     Route: 065
  11. ROBAXIN [Concomitant]
     Route: 065
  12. METHOCARBAMOL [Concomitant]
     Route: 065
  13. NAPROXEN [Concomitant]
     Route: 065
  14. OXYTROL [Concomitant]
     Route: 065
  15. PAXIL [Concomitant]
     Route: 065
  16. PREDNISONE [Concomitant]
     Route: 065
  17. VIOXX [Suspect]
     Indication: ARTHRITIS
     Route: 048
     Dates: start: 20040501, end: 20040801
  18. VIOXX [Suspect]
     Route: 048
     Dates: start: 20000901, end: 20040501
  19. ZOLOFT [Concomitant]
     Route: 065
  20. ZOCOR [Concomitant]
     Route: 048
  21. DETROL LA [Concomitant]
     Route: 065
  22. AMBIEN [Concomitant]
     Route: 065

REACTIONS (11)
  - ARTHROPATHY [None]
  - BACK DISORDER [None]
  - BLADDER DISORDER [None]
  - BLOOD PRESSURE INCREASED [None]
  - CONTUSION [None]
  - HEPATOMEGALY [None]
  - INSOMNIA [None]
  - NEPHROLITHIASIS [None]
  - PRESCRIBED OVERDOSE [None]
  - RASH [None]
  - STOMACH DISCOMFORT [None]
